FAERS Safety Report 14317489 (Version 1)
Quarter: 2017Q4

REPORT INFORMATION
  Report Type: Report from Study
  Country: US (occurrence: US)
  Receive Date: 20171222
  Receipt Date: 20171222
  Transmission Date: 20180321
  Serious: Yes (Death)
  Sender: FDA-Public Use
  Company Number: US-CIPLA LTD.-2017US25394

PATIENT

DRUGS (3)
  1. GANITUMAB [Suspect]
     Active Substance: GANITUMAB
     Indication: SMALL CELL LUNG CANCER
     Dosage: 18 MG/KG, UNK
     Route: 065
  2. ETOPOSIDE. [Suspect]
     Active Substance: ETOPOSIDE
     Indication: SMALL CELL LUNG CANCER EXTENSIVE STAGE
     Dosage: 100 MG/M2, UNK
     Route: 042
  3. CARBOPLATIN. [Suspect]
     Active Substance: CARBOPLATIN
     Indication: SMALL CELL LUNG CANCER EXTENSIVE STAGE
     Dosage: AUC 5 MG/ML/MIN OVER 30 MINUTES
     Route: 042

REACTIONS (1)
  - Febrile neutropenia [Fatal]
